FAERS Safety Report 20930791 (Version 1)
Quarter: 2022Q2

REPORT INFORMATION
  Report Type: Report from Study
  Country: AU (occurrence: AU)
  Receive Date: 20220608
  Receipt Date: 20220608
  Transmission Date: 20220721
  Serious: Yes (Death, Hospitalization)
  Sender: FDA-Public Use
  Company Number: AU-MYLANLABS-2022M1042636

PATIENT
  Age: 79 Year
  Sex: Male

DRUGS (6)
  1. MORPHINE [Suspect]
     Active Substance: MORPHINE
     Indication: Pain management
     Dosage: 10 MILLIGRAM, QD
     Route: 030
  2. TRAMADOL [Suspect]
     Active Substance: TRAMADOL
     Indication: Pain management
     Dosage: 100 MILLIGRAM, PRN
     Route: 042
  3. OXYCODONE [Suspect]
     Active Substance: OXYCODONE
     Indication: Pain management
     Dosage: 20 MILLIGRAM, BID, MODIFIED RELEASE
     Route: 048
  4. OXYCODONE [Suspect]
     Active Substance: OXYCODONE
     Indication: Pain management
     Dosage: 20 MILLIGRAM, Q3H, IMMEDIATE RELEASE
     Route: 048
  5. ROPIVACAINE [Suspect]
     Active Substance: ROPIVACAINE
     Indication: Pain management
     Dosage: UNK
  6. ROPIVACAINE [Suspect]
     Active Substance: ROPIVACAINE
     Indication: Nerve block

REACTIONS (2)
  - Respiratory depression [Fatal]
  - Toxicity to various agents [Fatal]
